FAERS Safety Report 7309434-9 (Version None)
Quarter: 2011Q1

REPORT INFORMATION
  Report Type: 
  Country: None (occurrence: None)
  Receive Date: 20110223
  Receipt Date: 20110216
  Transmission Date: 20110831
  Serious: Yes (Hospitalization)
  Sender: FDA-Public Use
  Company Number: US-US-EMD SERONO, INC.-7020761

PATIENT
  Sex: Male
  Weight: 95 kg

DRUGS (20)
  1. OXYCONTIN [Concomitant]
     Indication: MIGRAINE
  2. FAMOTIDINE [Concomitant]
  3. GABAPENTIN [Concomitant]
  4. HYDROXINE [Concomitant]
     Indication: BIPOLAR I DISORDER
  5. TRICOR [Concomitant]
  6. OXYCODONE [Concomitant]
  7. ELAVIL [Concomitant]
  8. FLOMAX [Concomitant]
  9. ULTRAM [Concomitant]
  10. BUSPAR [Concomitant]
     Indication: BIPOLAR I DISORDER
  11. SEROQUEL [Concomitant]
     Indication: BIPOLAR DISORDER
  12. IMITREX [Concomitant]
     Indication: MIGRAINE
  13. REBIF [Suspect]
     Indication: MULTIPLE SCLEROSIS
     Route: 058
     Dates: start: 20090501
  14. VERAPAMIL [Concomitant]
  15. LUTEN [Concomitant]
  16. ZOLOFT [Concomitant]
  17. RESTORIL [Concomitant]
  18. BACLOFEN [Concomitant]
  19. FOLIC ACID [Concomitant]
  20. DEPAKOTE [Concomitant]
     Indication: CLUSTER HEADACHE

REACTIONS (4)
  - MANIA [None]
  - INJECTION SITE PAIN [None]
  - FATIGUE [None]
  - INJECTION SITE REACTION [None]
